FAERS Safety Report 24399237 (Version 2)
Quarter: 2025Q3

REPORT INFORMATION
  Report Type: Report from Study
  Country: US (occurrence: US)
  Receive Date: 20241004
  Receipt Date: 20250809
  Transmission Date: 20251021
  Serious: Yes (Other)
  Sender: ALEXION PHARMACEUTICALS
  Company Number: US-AstraZeneca-CH-00710714A

PATIENT
  Sex: Female

DRUGS (3)
  1. FASENRA [Suspect]
     Active Substance: BENRALIZUMAB
     Indication: Asthma
  2. NUCALA [Concomitant]
     Active Substance: MEPOLIZUMAB
     Route: 050
  3. ALECENSA [Concomitant]
     Active Substance: ALECTINIB HYDROCHLORIDE

REACTIONS (7)
  - Lung neoplasm malignant [Unknown]
  - Fatigue [Unknown]
  - Nausea [Unknown]
  - Vomiting [Unknown]
  - Dysphagia [Unknown]
  - Malaise [Unknown]
  - Decreased activity [Unknown]
